FAERS Safety Report 7460663-3 (Version None)
Quarter: 2011Q2

REPORT INFORMATION
  Report Type: 
  Country: None (occurrence: None)
  Receive Date: 20110505
  Receipt Date: 20110502
  Transmission Date: 20111010
  Serious: Yes (Other)
  Sender: FDA-Public Use
  Company Number: US-ABBOTT-11P-163-0723143-00

PATIENT
  Age: 48 Year
  Sex: Male

DRUGS (6)
  1. HUMIRA [Suspect]
     Indication: ANKYLOSING SPONDYLITIS
     Route: 058
     Dates: start: 20090101
  2. HYDROCHLOROTHIAZIDE [Concomitant]
     Indication: HYPERTENSION
  3. METOPROLOL SUCCINATE [Concomitant]
     Indication: HYPERTENSION
  4. GEMFIBROZIL [Concomitant]
     Indication: BLOOD TRIGLYCERIDES ABNORMAL
  5. CELEBREX [Concomitant]
     Indication: BACK PAIN
  6. ACCUPRIL [Concomitant]
     Indication: HYPERTENSION

REACTIONS (5)
  - TENDON RUPTURE [None]
  - INAPPROPRIATE SCHEDULE OF DRUG ADMINISTRATION [None]
  - DRUG EFFECT DECREASED [None]
  - INCORRECT STORAGE OF DRUG [None]
  - BACK PAIN [None]
